FAERS Safety Report 7027468-9 (Version None)
Quarter: 2010Q4

REPORT INFORMATION
  Report Type: 
  Country: None (occurrence: None)
  Receive Date: 20101004
  Receipt Date: 20100927
  Transmission Date: 20110411
  Serious: Yes (Hospitalization, Other)
  Sender: FDA-Public Use
  Company Number: GB-NOVOPROD-311061

PATIENT
  Age: 51 Year
  Sex: Female
  Weight: 98.8 kg

DRUGS (8)
  1. VICTOZA [Suspect]
     Indication: TYPE 2 DIABETES MELLITUS
     Dosage: 1.2 MG, QD
     Dates: start: 20100120, end: 20100501
  2. VICTOZA [Suspect]
     Indication: WEIGHT INCREASED
  3. HORMONES NOS [Concomitant]
  4. METFORMIN [Concomitant]
     Dosage: 1 G, BID
  5. NOVOMIX 30 [Concomitant]
     Dosage: 24+18
     Dates: start: 20091101
  6. SIMVASTATIN [Concomitant]
     Dosage: 40 MG, QD
  7. LISINOPRIL [Concomitant]
     Dosage: 5 MG, QD
  8. GABAPENTIN [Concomitant]
     Dosage: 300 MG, TID

REACTIONS (1)
  - BREAST CANCER [None]
